FAERS Safety Report 5384258-0 (Version None)
Quarter: 2007Q3

REPORT INFORMATION
  Report Type: 
  Country: None (occurrence: None)
  Receive Date: 20070711
  Receipt Date: 20070709
  Transmission Date: 20080115
  Serious: Yes (Death)
  Sender: FDA-Public Use
  Company Number: SG-BRISTOL-MYERS SQUIBB COMPANY-13838131

PATIENT
  Age: 60 Year
  Sex: Female

DRUGS (3)
  1. SPRYCEL [Suspect]
     Indication: CHRONIC MYELOID LEUKAEMIA
     Route: 048
     Dates: start: 20070706, end: 20070709
  2. CALCITRIOL [Concomitant]
     Dates: start: 19990101
  3. IRON SUPPLEMENT [Concomitant]
     Dates: start: 19990101

REACTIONS (2)
  - GASTROINTESTINAL HAEMORRHAGE [None]
  - SEPSIS [None]
